FAERS Safety Report 21241599 (Version 1)
Quarter: 2022Q3

REPORT INFORMATION
  Report Type: Spontaneous
  Country: BR (occurrence: None)
  Receive Date: 20220823
  Receipt Date: 20220823
  Transmission Date: 20221026
  Serious: Yes (Other)
  Sender: FDA-Public Use
  Company Number: BR-ROCHE-3160778

PATIENT
  Sex: Female
  Weight: 50 kg

DRUGS (1)
  1. OCREVUS [Suspect]
     Active Substance: OCRELIZUMAB
     Indication: Product used for unknown indication
     Route: 042

REACTIONS (6)
  - Dizziness [Unknown]
  - Facial paralysis [Unknown]
  - Vertigo [Unknown]
  - Headache [Unknown]
  - Asthenia [Unknown]
  - Fatigue [Unknown]
